FAERS Safety Report 11097448 (Version 1)
Quarter: 2015Q2

REPORT INFORMATION
  Report Type: Spontaneous
  Country: US (occurrence: US)
  Receive Date: 20150507
  Receipt Date: 20150507
  Transmission Date: 20150821
  Serious: No
  Sender: FDA-Public Use
  Company Number: US-GLAXOSMITHKLINE-US2015057342

PATIENT
  Age: 27 Year

DRUGS (3)
  1. ALLI [Suspect]
     Active Substance: ORLISTAT
     Indication: WEIGHT LOSS DIET
     Dosage: UNK
  2. ALLI [Suspect]
     Active Substance: ORLISTAT
     Dosage: UNK
  3. ALLI [Suspect]
     Active Substance: ORLISTAT
     Dosage: UNK

REACTIONS (4)
  - Steatorrhoea [Not Recovered/Not Resolved]
  - Treatment noncompliance [Unknown]
  - Faeces discoloured [Not Recovered/Not Resolved]
  - Rectal discharge [Not Recovered/Not Resolved]
